FAERS Safety Report 5829818-5 (Version None)
Quarter: 2008Q3

REPORT INFORMATION
  Report Type: 
  Country: None (occurrence: None)
  Receive Date: 20080801
  Receipt Date: 20080801
  Transmission Date: 20090109
  Serious: Yes (Other)
  Sender: FDA-Public Use
  Company Number: None

PATIENT
  Sex: Male
  Weight: 70.7 kg

DRUGS (9)
  1. HEPARIN SODIUM [Suspect]
     Indication: ACUTE MYOCARDIAL INFARCTION
     Dosage: 4000 UNITS XL IV BOLUS, ONE DOSE
     Route: 040
     Dates: start: 20080728, end: 20080728
  2. HEPARIN SODIUM [Suspect]
     Indication: ACUTE MYOCARDIAL INFARCTION
     Dosage: 1000 UNITS PER HOUR CONTINUOUS INFUSION IV DRIP, 30 MINUTES
     Route: 041
     Dates: start: 20080728, end: 20080728
  3. METOPROLOL [Concomitant]
  4. CEFAZOLIN [Concomitant]
  5. FAMOTIDINE [Concomitant]
  6. MORPHINE [Concomitant]
  7. NITROGLYCERIN [Concomitant]
  8. ASPIRIN [Concomitant]
  9. DEXTROSE 5% IN LACTATED RINGER'S [Concomitant]

REACTIONS (7)
  - ANXIETY [None]
  - CONFUSIONAL STATE [None]
  - DYSPNOEA [None]
  - HYPOTENSION [None]
  - HYPOXIA [None]
  - NODAL RHYTHM [None]
  - TACHYCARDIA [None]
